FAERS Safety Report 17803123 (Version 1)
Quarter: 2020Q2

REPORT INFORMATION
  Report Type: Spontaneous
  Country: FR (occurrence: FR)
  Receive Date: 20200519
  Receipt Date: 20200519
  Transmission Date: 20200714
  Serious: Yes (Hospitalization)
  Sender: FDA-Public Use
  Company Number: FR-ACCORD-182454

PATIENT
  Age: 65 Year
  Sex: Male
  Weight: 112 kg

DRUGS (11)
  1. PANTOPRAZOLE [Concomitant]
     Active Substance: PANTOPRAZOLE
     Route: 048
  2. BROMAZEPAM [Concomitant]
     Active Substance: BROMAZEPAM
     Indication: PRODUCT USED FOR UNKNOWN INDICATION
     Route: 048
  3. TROPATEPINE [Concomitant]
     Active Substance: TROPATEPINE
     Route: 048
  4. MIANSERIN/MIANSERIN HYDROCHLORIDE [Concomitant]
     Active Substance: MIANSERIN\MIANSERIN HYDROCHLORIDE
     Indication: PRODUCT USED FOR UNKNOWN INDICATION
     Route: 048
  5. TIAPRIDE [Suspect]
     Active Substance: TIAPRIDE
     Indication: PSYCHOTIC DISORDER
     Dosage: 125 MG MATIN MIDI ET 50 MG LE SOIR
     Route: 048
     Dates: end: 20200410
  6. SILODOSIN. [Concomitant]
     Active Substance: SILODOSIN
     Route: 048
  7. ACETYLLEUCINE/ACETYLLEUCINE LYSINE [Concomitant]
     Indication: PRODUCT USED FOR UNKNOWN INDICATION
     Route: 048
  8. ATORVASTATIN/ATORVASTATIN CALCIUM [Suspect]
     Active Substance: ATORVASTATIN CALCIUM
     Indication: PRODUCT USED FOR UNKNOWN INDICATION
     Route: 048
     Dates: end: 20200409
  9. PREGABALIN. [Suspect]
     Active Substance: PREGABALIN
     Indication: PRODUCT USED FOR UNKNOWN INDICATION
     Route: 048
     Dates: end: 20200410
  10. HALOPERIDOL. [Suspect]
     Active Substance: HALOPERIDOL
     Indication: PSYCHOTIC DISORDER
     Dosage: 5 MG MORNING, NOON AND 2.5 MG EVENING DOSAGE 2
     Route: 048
     Dates: end: 20200410
  11. ALIMEMAZINE [Suspect]
     Active Substance: TRIMEPRAZINE
     Indication: PSYCHOTIC DISORDER
     Route: 048
     Dates: end: 20200409

REACTIONS (3)
  - Pyrexia [Recovered/Resolved]
  - Rhabdomyolysis [Recovered/Resolved]
  - Extrapyramidal disorder [Recovering/Resolving]

NARRATIVE: CASE EVENT DATE: 20200406
